FAERS Safety Report 4693068-9 (Version None)
Quarter: 2005Q2

REPORT INFORMATION
  Report Type: 
  Country: None (occurrence: None)
  Receive Date: 20050617
  Receipt Date: 20040323
  Transmission Date: 20051028
  Serious: Yes (Hospitalization, Disabling, Other)
  Sender: FDA-Public Use
  Company Number: PHHO2004ES04348

PATIENT
  Age: 26 Year
  Sex: Male

DRUGS (4)
  1. CYCLOSPORINE [Suspect]
     Indication: GRAFT VERSUS HOST DISEASE
  2. GLEEVEC [Suspect]
     Indication: ACUTE LYMPHOCYTIC LEUKAEMIA
     Dosage: 400 MG, QD
     Route: 048
     Dates: start: 20030827, end: 20031106
  3. GLEEVEC [Suspect]
     Dosage: NO TREATMENT
     Dates: start: 20031107, end: 20031129
  4. GLEEVEC [Suspect]
     Dosage: 400 MG, QD
     Route: 048
     Dates: start: 20031130, end: 20040107

REACTIONS (8)
  - ABDOMINAL PAIN [None]
  - BLOOD BILIRUBIN ABNORMAL [None]
  - BLOOD MAGNESIUM DECREASED [None]
  - DIARRHOEA [None]
  - GRAFT VERSUS HOST DISEASE [None]
  - HYPOMAGNESAEMIA [None]
  - HYPONATRAEMIA [None]
  - PYREXIA [None]
